FAERS Safety Report 8270149 (Version 2)
Quarter: 2013Q2

REPORT INFORMATION
  Report Type: Spontaneous
  Country: BE (occurrence: BE)
  Receive Date: 20111201
  Receipt Date: 20130515
  Transmission Date: 20140414
  Serious: Yes (Death)
  Sender: FDA-Public Use
  Company Number: BE-ELI_LILLY_AND_COMPANY-BE201111005946

PATIENT
  Age: 59 Year
  Sex: Female

DRUGS (4)
  1. ZYPADHERA [Suspect]
     Indication: PSYCHOTIC DISORDER
     Dosage: 405 MG, SINGLE
  2. ZYPREXA VELOTAB [Suspect]
     Indication: PSYCHOTIC DISORDER
     Dosage: 10 MG, BID
  3. ZYPREXA VELOTAB [Suspect]
     Dosage: 10 MG, QID
  4. MANIPREX [Concomitant]

REACTIONS (3)
  - Pulmonary embolism [Fatal]
  - Insomnia [Unknown]
  - Overdose [Unknown]
